FAERS Safety Report 25830364 (Version 1)
Quarter: 2025Q3

REPORT INFORMATION
  Report Type: Spontaneous
  Country: US (occurrence: None)
  Receive Date: 20250919
  Receipt Date: 20250919
  Transmission Date: 20251021
  Serious: Yes (unspecified)
  Sender: FDA-CTU
  Company Number: None

PATIENT
  Age: 27 Year
  Sex: Female
  Weight: 68 kg

DRUGS (4)
  1. BIVIGAM [Suspect]
     Active Substance: HUMAN IMMUNOGLOBULIN G
     Indication: Encephalitis
     Dosage: OTHER FREQUENCY : 1 DAY EVERY 2 WKS;?
     Dates: start: 20250829, end: 20250829
  2. BIVIGAM [Suspect]
     Active Substance: HUMAN IMMUNOGLOBULIN G
     Indication: Product substitution issue
  3. Diphenhydramine 50mg PO [Concomitant]
     Dates: start: 20250827, end: 20250827
  4. Solu Medrol 125mg IV [Concomitant]
     Dates: start: 20250827, end: 20250827

REACTIONS (4)
  - Rash [None]
  - Urticaria [None]
  - Infusion related reaction [None]
  - Documented hypersensitivity to administered product [None]

NARRATIVE: CASE EVENT DATE: 20250829
